FAERS Safety Report 11086304 (Version 1)
Quarter: 2015Q2

REPORT INFORMATION
  Report Type: Spontaneous
  Country: GB (occurrence: GB)
  Receive Date: 20150504
  Receipt Date: 20150504
  Transmission Date: 20150821
  Serious: Yes (Other)
  Sender: FDA-Public Use
  Company Number: GB-ROCHE-1571824

PATIENT
  Age: 35 Year
  Sex: Female
  Weight: 56 kg

DRUGS (1)
  1. PEGASYS [Suspect]
     Active Substance: PEGINTERFERON ALFA-2A
     Indication: HEPATITIS C RNA POSITIVE
     Route: 058
     Dates: start: 20131007, end: 20140317

REACTIONS (4)
  - Hypothyroidism [Not Recovered/Not Resolved]
  - Basedow^s disease [Not Recovered/Not Resolved]
  - Endocrine ophthalmopathy [Not Recovered/Not Resolved]
  - Vascular resistance systemic [Unknown]

NARRATIVE: CASE EVENT DATE: 20140120
